FAERS Safety Report 7396062-2 (Version None)
Quarter: 2011Q2

REPORT INFORMATION
  Report Type: 
  Country: None (occurrence: None)
  Receive Date: 20110406
  Receipt Date: 20110329
  Transmission Date: 20111010
  Serious: Yes (Other)
  Sender: FDA-Public Use
  Company Number: US-US-EMD SERONO, INC.-7051251

PATIENT
  Sex: Female

DRUGS (2)
  1. ADVIL LIQUI-GELS [Concomitant]
     Indication: PREMEDICATION
  2. REBIF [Suspect]
     Indication: PRODUCT USED FOR UNKNOWN INDICATION
     Route: 058
     Dates: start: 20071031, end: 20110201

REACTIONS (4)
  - INFLUENZA [None]
  - INJECTION SITE PAIN [None]
  - BRONCHITIS [None]
  - PNEUMONIA PRIMARY ATYPICAL [None]
